FAERS Safety Report 19667958 (Version 2)
Quarter: 2021Q3

REPORT INFORMATION
  Report Type: Spontaneous
  Country: IN (occurrence: IN)
  Receive Date: 20210806
  Receipt Date: 20210812
  Transmission Date: 20211014
  Serious: Yes (Other)
  Sender: FDA-Public Use
  Company Number: IN-PFIZER INC-2021073056

PATIENT
  Age: 64 Year
  Sex: Female

DRUGS (7)
  1. PALBACE [Suspect]
     Active Substance: PALBOCICLIB
     Dosage: UNK
     Dates: start: 20210308
  2. FULVESTRANT. [Concomitant]
     Active Substance: FULVESTRANT
     Dosage: UNK
     Dates: start: 20210519
  3. FULVESTRANT. [Concomitant]
     Active Substance: FULVESTRANT
     Dosage: 500 MG, MONTHLY
  4. DENOSUMAB [Concomitant]
     Active Substance: DENOSUMAB
     Dosage: UNK
     Dates: start: 20210519
  5. DENOSUMAB [Concomitant]
     Active Substance: DENOSUMAB
     Dosage: 120 MG, MONTHLY
  6. PALBACE [Suspect]
     Active Substance: PALBOCICLIB
     Indication: BREAST CANCER METASTATIC
     Dosage: 125 MG, CYCLIC (ONCE A DAY, 3 WEEKS ON FOLLOWED BY 1 WEEK OFF)
     Route: 048
     Dates: start: 20201205
  7. PALBACE [Suspect]
     Active Substance: PALBOCICLIB
     Dosage: UNK (AFTER HOLDING IT FOR 1 WEEK COMPLETED 7 CYCLES PALBACE YESTERDAY)

REACTIONS (7)
  - Internal haemorrhage [Recovered/Resolved]
  - Diarrhoea [Unknown]
  - Sleep disorder [Recovered/Resolved]
  - Abdominal pain upper [Recovered/Resolved]
  - Vomiting [Recovered/Resolved]
  - Platelet count decreased [Unknown]
  - Enteritis infectious [Recovering/Resolving]
